FAERS Safety Report 8866391 (Version 2)
Quarter: 2012Q4

REPORT INFORMATION
  Report Type: 
  Country: CH (occurrence: CH)
  Receive Date: 20121025
  Receipt Date: 20121101
  Transmission Date: 20130627
  Serious: Yes (Life-Threatening, Hospitalization)
  Sender: FDA-Public Use
  Company Number: CH-BAYER-2012-112092

PATIENT
  Age: 30 Year
  Sex: Male

DRUGS (1)
  1. BETAFERON [Suspect]
     Indication: MULTIPLE SCLEROSIS
     Dosage: 18 u, UNK
     Dates: end: 20121018

REACTIONS (3)
  - Myocardial infarction [Recovering/Resolving]
  - Coronary artery stenosis [None]
  - Angina pectoris [None]
